FAERS Safety Report 16879705 (Version 2)
Quarter: 2019Q4

REPORT INFORMATION
  Report Type: Spontaneous
  Country: US (occurrence: US)
  Receive Date: 20191003
  Receipt Date: 20191021
  Transmission Date: 20200122
  Serious: Yes (Death, Hospitalization, Other)
  Sender: FDA-Public Use
  Company Number: US-009507513-1910USA002094

PATIENT
  Sex: Female
  Weight: 117.91 kg

DRUGS (3)
  1. CALCIUM CARBONATE. [Concomitant]
     Active Substance: CALCIUM CARBONATE
     Indication: POLYARTHRITIS
     Dosage: UNK
     Dates: start: 200902, end: 201806
  2. CHOLECALCIFEROL [Concomitant]
     Active Substance: CHOLECALCIFEROL
     Indication: POLYARTHRITIS
     Dosage: UNK
     Dates: start: 200902, end: 201806
  3. JANUVIA [Suspect]
     Active Substance: SITAGLIPTIN PHOSPHATE
     Dosage: 100 MILLIGRAM, ONCE DAILY
     Route: 048
     Dates: start: 20091110, end: 20170103

REACTIONS (22)
  - Major depression [Unknown]
  - Anxiety [Unknown]
  - Ductal adenocarcinoma of pancreas [Unknown]
  - Cholecystitis chronic [Unknown]
  - Large intestinal haemorrhage [Unknown]
  - Peripheral pulse decreased [Unknown]
  - Arrhythmia [Unknown]
  - Oxygen saturation decreased [Unknown]
  - Dry mouth [Unknown]
  - Unresponsive to stimuli [Unknown]
  - Cholelithiasis [Unknown]
  - Hallucination [Unknown]
  - Thrombocytopenia [Recovered/Resolved]
  - Mammogram abnormal [Unknown]
  - Emotional distress [Unknown]
  - Thyroid disorder [Unknown]
  - Death [Fatal]
  - Mesenteric vascular occlusion [Unknown]
  - Colitis [Unknown]
  - Hypopnoea [Unknown]
  - Splenic vein thrombosis [Unknown]
  - Depression [Unknown]

NARRATIVE: CASE EVENT DATE: 20121003
